FAERS Safety Report 5905694-7 (Version None)
Quarter: 2008Q4

REPORT INFORMATION
  Report Type: 
  Country: None (occurrence: None)
  Receive Date: 20081002
  Receipt Date: 20080926
  Transmission Date: 20090506
  Serious: Yes (Hospitalization, Other)
  Sender: FDA-Public Use
  Company Number: US-BAYER-200810768BCC

PATIENT
  Age: 53 Year
  Sex: Male
  Weight: 84 kg

DRUGS (3)
  1. ASPIRIN [Suspect]
     Indication: MYOCARDIAL INFARCTION
     Dosage: UNIT DOSE: 325 MG
     Route: 048
     Dates: start: 20070219
  2. BLOOD PRESSURE MEDICATION (NOS) [Concomitant]
  3. LOTENSIN [Concomitant]

REACTIONS (9)
  - BLOOD DISORDER [None]
  - CARDIAC VENTRICULAR DISORDER [None]
  - COMA [None]
  - HEART TRANSPLANT [None]
  - HYPOXIA [None]
  - PNEUMONIA [None]
  - PULMONARY OEDEMA [None]
  - RENAL FAILURE [None]
  - RESPIRATORY FAILURE [None]
